FAERS Safety Report 7700536-1 (Version None)
Quarter: 2011Q3

REPORT INFORMATION
  Report Type: 
  Country: None (occurrence: None)
  Receive Date: 20110822
  Receipt Date: 20110809
  Transmission Date: 20111222
  Serious: No
  Sender: FDA-Public Use
  Company Number: US-JNJFOC-20110805685

PATIENT
  Sex: Female

DRUGS (2)
  1. INVEGA [Suspect]
     Indication: BIPOLAR DISORDER
     Route: 048
     Dates: start: 20110701, end: 20110801
  2. RISPERIDONE [Suspect]
     Indication: BIPOLAR DISORDER
     Route: 048
     Dates: end: 20110601

REACTIONS (4)
  - ANXIETY [None]
  - DRUG INEFFECTIVE [None]
  - FEELING ABNORMAL [None]
  - SOMNOLENCE [None]
